FAERS Safety Report 18033894 (Version 2)
Quarter: 2020Q3

REPORT INFORMATION
  Report Type: Spontaneous
  Country: US (occurrence: US)
  Receive Date: 20200716
  Receipt Date: 20200917
  Transmission Date: 20201103
  Serious: Yes (Other)
  Sender: FDA-Public Use
  Company Number: US-GILEAD-2020-0480349

PATIENT
  Age: 45 Year
  Sex: Male
  Weight: 119.73 kg

DRUGS (34)
  1. NORVIR [Concomitant]
     Active Substance: RITONAVIR
  2. AMITRIPTYLINE [Concomitant]
     Active Substance: AMITRIPTYLINE
  3. FENOFIBRATE. [Concomitant]
     Active Substance: FENOFIBRATE
  4. OMEGA 3 [FISH OIL] [Concomitant]
     Active Substance: FISH OIL
  5. GENVOYA [Concomitant]
     Active Substance: COBICISTAT\ELVITEGRAVIR\EMTRICITABINE\TENOFOVIR ALAFENAMIDE FUMARATE
  6. PREZISTA [Concomitant]
     Active Substance: DARUNAVIR ETHANOLATE
  7. ATARAX [Concomitant]
     Active Substance: HYDROXYZINE HYDROCHLORIDE
  8. HYDROCODONE/ACETAMINOPHEN [Concomitant]
     Active Substance: ACETAMINOPHEN\HYDROCODONE
  9. TOLTERODINE TARTRATE. [Concomitant]
     Active Substance: TOLTERODINE TARTRATE
  10. DIFLUCAN [Concomitant]
     Active Substance: FLUCONAZOLE
  11. FOLIC ACID. [Concomitant]
     Active Substance: FOLIC ACID
  12. STIOLTO RESPIMAT [Concomitant]
     Active Substance: OLODATEROL HYDROCHLORIDE\TIOTROPIUM BROMIDE MONOHYDRATE
  13. VITAMIN D2 [Concomitant]
     Active Substance: ERGOCALCIFEROL
  14. TRUVADA [Suspect]
     Active Substance: EMTRICITABINE\TENOFOVIR DISOPROXIL FUMARATE
     Dosage: UNK
     Route: 048
     Dates: start: 20080125, end: 201512
  15. LOTREL [LOTEPREDNOL ETABONATE] [Concomitant]
     Active Substance: LOTEPREDNOL ETABONATE
  16. REYATAZ [Concomitant]
     Active Substance: ATAZANAVIR SULFATE
  17. TIVICAY [Concomitant]
     Active Substance: DOLUTEGRAVIR SODIUM
  18. ELAVIL [ALLOPURINOL] [Concomitant]
     Active Substance: ALLOPURINOL
  19. HYDROCHLOROTHIAZIDE. [Concomitant]
     Active Substance: HYDROCHLOROTHIAZIDE
  20. PROVENTIL [Concomitant]
     Active Substance: ALBUTEROL
  21. ATORVASTATIN CALCIUM. [Concomitant]
     Active Substance: ATORVASTATIN CALCIUM
  22. FLUCONAZOLE. [Concomitant]
     Active Substance: FLUCONAZOLE
  23. MYRBETRIQ [Concomitant]
     Active Substance: MIRABEGRON
  24. ZITHROMAX [Concomitant]
     Active Substance: AZITHROMYCIN DIHYDRATE
  25. TRUVADA [Suspect]
     Active Substance: EMTRICITABINE\TENOFOVIR DISOPROXIL FUMARATE
     Indication: HIV INFECTION
     Dosage: UNK
     Route: 048
     Dates: start: 2014, end: 2016
  26. BACLOFEN. [Concomitant]
     Active Substance: BACLOFEN
  27. CYMBALTA [Concomitant]
     Active Substance: DULOXETINE HYDROCHLORIDE
  28. FAMOTIDINE. [Concomitant]
     Active Substance: FAMOTIDINE
  29. EMTRIVA [Concomitant]
     Active Substance: EMTRICITABINE
  30. ALPHAGEN [Concomitant]
     Active Substance: BRIMONIDINE TARTRATE
  31. FISH OIL [Concomitant]
     Active Substance: FISH OIL
  32. RANITIDINE. [Concomitant]
     Active Substance: RANITIDINE
  33. SMZ?TMP DS [Concomitant]
     Active Substance: SULFAMETHOXAZOLE\TRIMETHOPRIM
  34. SPIRIVA RESPIMAT [Concomitant]
     Active Substance: TIOTROPIUM BROMIDE

REACTIONS (5)
  - Emotional distress [Unknown]
  - Chronic kidney disease [Not Recovered/Not Resolved]
  - Renal injury [Unknown]
  - Pain [Unknown]
  - Skeletal injury [Unknown]

NARRATIVE: CASE EVENT DATE: 20110815
